FAERS Safety Report 8886722 (Version 2)
Quarter: 2012Q4

REPORT INFORMATION
  Report Type: 
  Country: GB (occurrence: GB)
  Receive Date: 20121105
  Receipt Date: 20121109
  Transmission Date: 20130627
  Serious: Yes (Hospitalization)
  Sender: FDA-Public Use
  Company Number: PHFR2012GB005713

PATIENT
  Age: 39 Year
  Sex: Male

DRUGS (1)
  1. CLOZARIL [Suspect]
     Indication: SCHIZOPHRENIA
     Dates: start: 20020717

REACTIONS (4)
  - Cellulitis [Unknown]
  - Schizophrenia [Unknown]
  - Platelet count increased [Unknown]
  - Neutrophil count increased [Unknown]
